FAERS Safety Report 7917254-7 (Version None)
Quarter: 2011Q4

REPORT INFORMATION
  Report Type: 
  Country: None (occurrence: None)
  Receive Date: 20111116
  Receipt Date: 20111101
  Transmission Date: 20120403
  Serious: Yes (Hospitalization)
  Sender: FDA-Public Use
  Company Number: PHHY2011US39244

PATIENT
  Sex: Male
  Weight: 98.866 kg

DRUGS (1)
  1. GLEEVEC [Suspect]
     Indication: MALIGNANT MAST CELL NEOPLASM
     Dosage: 400 MG DAILY
     Route: 048
     Dates: start: 20110406, end: 20111015

REACTIONS (6)
  - DIARRHOEA [None]
  - MASTOCYTOSIS [None]
  - WEIGHT DECREASED [None]
  - DYSPNOEA [None]
  - NAUSEA [None]
  - LOCALISED OEDEMA [None]
